FAERS Safety Report 7065374-4 (Version None)
Quarter: 2010Q4

REPORT INFORMATION
  Report Type: 
  Country: None (occurrence: None)
  Receive Date: 20101027
  Receipt Date: 20101019
  Transmission Date: 20110411
  Serious: Yes (Other)
  Sender: FDA-Public Use
  Company Number: CHPA2010US16358

PATIENT
  Sex: Female

DRUGS (3)
  1. EX-LAX LAXATIVE UNKNOWN FORMULA (NCH) [Suspect]
     Indication: EATING DISORDER
     Dosage: 30 DF, QD
     Route: 048
  2. LAXATIVES [Concomitant]
     Dosage: UNK, UNK
  3. DULCOLAX [Concomitant]
     Dosage: UNK, UNK

REACTIONS (5)
  - DRUG ABUSE [None]
  - FLUID RETENTION [None]
  - OFF LABEL USE [None]
  - OVERDOSE [None]
  - PURGING [None]
